FAERS Safety Report 8477406-7 (Version None)
Quarter: 2012Q2

REPORT INFORMATION
  Report Type: 
  Country: None (occurrence: None)
  Receive Date: 20120629
  Receipt Date: 20120626
  Transmission Date: 20120825
  Serious: Yes (Death, Other)
  Sender: FDA-Public Use
  Company Number: US-BAYER-2012-008946

PATIENT
  Age: 40 Year
  Sex: Female

DRUGS (9)
  1. YAZ [Suspect]
     Dosage: UNK
  2. LORTAB [Concomitant]
     Dosage: UNK
     Dates: start: 20100202
  3. LISINOPRIL AND HYDROCHLOROTHIAZIDE [Concomitant]
     Dosage: 20 MG, QD
     Route: 048
  4. LISINOPRIL [Concomitant]
     Dosage: 20 MG, QD
     Route: 048
  5. FLEXERIL [Concomitant]
     Dosage: 10 MG, TID AS NEEDED
     Route: 048
  6. DEMEROL [Concomitant]
     Dosage: 75 MG, UNK
     Route: 030
     Dates: start: 20100202
  7. PHENERGAN HCL [Concomitant]
     Dosage: 25 MG, UNK
     Route: 030
     Dates: start: 20100202
  8. ANAPROX [Concomitant]
     Dosage: UNK
     Dates: start: 20100202
  9. YASMIN [Suspect]
     Dosage: UNK

REACTIONS (7)
  - RESPIRATORY ARREST [None]
  - CHEST PAIN [None]
  - INJURY [None]
  - DEEP VEIN THROMBOSIS [None]
  - PAIN IN EXTREMITY [None]
  - CARDIAC ARREST [None]
  - PULMONARY EMBOLISM [None]
